FAERS Safety Report 22137075 (Version 1)
Quarter: 2023Q1

REPORT INFORMATION
  Report Type: Spontaneous
  Country: NZ (occurrence: NZ)
  Receive Date: 20230324
  Receipt Date: 20230324
  Transmission Date: 20230418
  Serious: Yes (Other)
  Sender: FDA-Public Use
  Company Number: NZ-NAPPMUNDI-GBR-2023-0106070

PATIENT
  Age: 14 Year
  Sex: Female

DRUGS (2)
  1. OXYCODONE HYDROCHLORIDE [Suspect]
     Active Substance: OXYCODONE HYDROCHLORIDE
     Indication: Product used for unknown indication
     Dosage: UNK
     Route: 065
  2. TRAMADOL [Suspect]
     Active Substance: TRAMADOL
     Indication: Product used for unknown indication
     Dosage: UNK
     Route: 065

REACTIONS (5)
  - Endometriosis [Recovering/Resolving]
  - Mental disorder [Recovering/Resolving]
  - Social avoidant behaviour [Recovering/Resolving]
  - Condition aggravated [Recovering/Resolving]
  - Adhesion [Recovering/Resolving]
